FAERS Safety Report 19402412 (Version 1)
Quarter: 2021Q2

REPORT INFORMATION
  Report Type: Spontaneous
  Country: FR (occurrence: FR)
  Receive Date: 20210610
  Receipt Date: 20210610
  Transmission Date: 20210717
  Serious: Yes (Hospitalization)
  Sender: FDA-Public Use
  Company Number: FR-MYLANLABS-2021M1033603

PATIENT
  Age: 75 Year
  Sex: Female
  Weight: 81 kg

DRUGS (1)
  1. VANCOMYCIN MYLAN [Suspect]
     Active Substance: VANCOMYCIN
     Indication: ANTIBIOTIC PROPHYLAXIS
     Dosage: 2500 MILLIGRAM, TOTAL
     Route: 042

REACTIONS (3)
  - Infusion related hypersensitivity reaction [Recovered/Resolved]
  - Incorrect product administration duration [Recovered/Resolved]
  - Product preparation issue [Recovered/Resolved]

NARRATIVE: CASE EVENT DATE: 20201126
